FAERS Safety Report 20010901 (Version 1)
Quarter: 2021Q4

REPORT INFORMATION
  Report Type: Report from Study
  Country: US (occurrence: US)
  Receive Date: 20211028
  Receipt Date: 20211028
  Transmission Date: 20220303
  Serious: Yes (Other)
  Sender: FDA-Public Use
  Company Number: US-SEATTLE GENETICS-2021SGN03048

PATIENT
  Sex: Female

DRUGS (18)
  1. TUCATINIB [Suspect]
     Active Substance: TUCATINIB
     Indication: Breast cancer female
     Dosage: 300 MG, BID
     Route: 048
     Dates: start: 20210520
  2. TUCATINIB [Suspect]
     Active Substance: TUCATINIB
     Dosage: UNK
  3. TUCATINIB [Suspect]
     Active Substance: TUCATINIB
     Dosage: UNK
  4. TUCATINIB [Suspect]
     Active Substance: TUCATINIB
     Dosage: 150 UNK
     Route: 048
  5. HERCEPTIN [Concomitant]
     Active Substance: TRASTUZUMAB
  6. CAPECITABINE [Concomitant]
     Active Substance: CAPECITABINE
     Dosage: 1000 MG, BID
     Route: 048
  7. VITAMIN D3 [Concomitant]
     Active Substance: CHOLECALCIFEROL
  8. LOPERAMIDE HYDROCHLORIDE [Concomitant]
     Active Substance: LOPERAMIDE HYDROCHLORIDE
  9. FUROSEMIDE [Concomitant]
     Active Substance: FUROSEMIDE
  10. HEPARIN [Concomitant]
     Active Substance: HEPARIN SODIUM
  11. HYDROCHLOROTHIAZIDE [Concomitant]
     Active Substance: HYDROCHLOROTHIAZIDE
  12. LETROZOLE [Concomitant]
     Active Substance: LETROZOLE
  13. EMLA [Concomitant]
     Active Substance: LIDOCAINE\PRILOCAINE
  14. ATIVAN [Concomitant]
     Active Substance: LORAZEPAM
  15. ZOFRAN [Concomitant]
     Active Substance: ONDANSETRON HYDROCHLORIDE
  16. POTASSIUM CHLORIDE [Concomitant]
     Active Substance: POTASSIUM CHLORIDE
  17. SENOKOT [Concomitant]
     Active Substance: SENNOSIDES
  18. VALSARTAN [Concomitant]
     Active Substance: VALSARTAN

REACTIONS (17)
  - Hypokalaemia [Unknown]
  - Skin discolouration [Unknown]
  - Dry skin [Unknown]
  - Back pain [Unknown]
  - Fatigue [Unknown]
  - Product dose omission in error [Unknown]
  - Disease progression [Unknown]
  - Nystagmus [Unknown]
  - Dizziness [Unknown]
  - Blood creatinine increased [Unknown]
  - Hypertension [Unknown]
  - Headache [Unknown]
  - Haemoglobin decreased [Unknown]
  - Decreased appetite [Unknown]
  - Weight decreased [Unknown]
  - Nausea [Not Recovered/Not Resolved]
  - Diarrhoea [Unknown]
